FAERS Safety Report 17640876 (Version 1)
Quarter: 2020Q2

REPORT INFORMATION
  Report Type: Spontaneous
  Country: IN (occurrence: IN)
  Receive Date: 20200407
  Receipt Date: 20200407
  Transmission Date: 20200713
  Serious: Yes (Hospitalization)
  Sender: FDA-Public Use
  Company Number: IN-BAUSCH-BL-2020-009266

PATIENT
  Age: 34 Year
  Sex: Male

DRUGS (12)
  1. PREDNISOLONE. [Suspect]
     Active Substance: PREDNISOLONE
     Route: 065
  2. CLOFAZIMINE [Concomitant]
     Active Substance: CLOFAZIMINE
     Indication: TYPE 2 LEPRA REACTION
     Dosage: DURATION OF 12 MONTHS
  3. CLOFAZIMINE [Concomitant]
     Active Substance: CLOFAZIMINE
     Dosage: FOR 12 MONTHS
  4. PREDNISOLONE. [Suspect]
     Active Substance: PREDNISOLONE
     Indication: LEPROMATOUS LEPROSY
     Dosage: 20 MG TO 60 MG DAILY,STOPPED THERAPY AROUND 3 MONTHS BEFORE PRESENTATION
     Route: 065
  5. DEXAMETHASONE. [Suspect]
     Active Substance: DEXAMETHASONE
     Indication: TYPE 2 LEPRA REACTION
  6. PREDNISOLONE. [Suspect]
     Active Substance: PREDNISOLONE
     Indication: TYPE 2 LEPRA REACTION
     Route: 065
  7. CLOFAZIMINE [Concomitant]
     Active Substance: CLOFAZIMINE
     Indication: LEPROMATOUS LEPROSY
     Dosage: STOPPED THERAPY AROUND 3 MONTHS BEFORE PRESENTATION
  8. DAPSONE. [Concomitant]
     Active Substance: DAPSONE
     Indication: LEPROMATOUS LEPROSY
     Dosage: STOPPED THERAPY AROUND 3 MONTHS BEFORE PRESENTATION
  9. RIFAMPICIN [Concomitant]
     Active Substance: RIFAMPIN
     Indication: LEPROMATOUS LEPROSY
     Dosage: STOPPED THERAPY AROUND 3 MONTHS BEFORE PRESENTATION
  10. DAPSONE. [Concomitant]
     Active Substance: DAPSONE
     Indication: TYPE 2 LEPRA REACTION
     Dosage: FOR 12 MONTHS
  11. DEXAMETHASONE. [Suspect]
     Active Substance: DEXAMETHASONE
     Indication: LEPROMATOUS LEPROSY
     Dosage: ON AND OFF FOR 4 MONTHS, STOPPED THERAPY AROUND 3 MONTHS BEFORE PRESENTATION
     Route: 065
  12. RIFAMPICIN [Concomitant]
     Active Substance: RIFAMPIN
     Indication: TYPE 2 LEPRA REACTION
     Dosage: FOR 12 MONTHS

REACTIONS (3)
  - Psoas abscess [Recovered/Resolved]
  - Burkholderia pseudomallei infection [Recovered/Resolved]
  - Sepsis [Recovered/Resolved]
